FAERS Safety Report 18801566 (Version 3)
Quarter: 2021Q1

REPORT INFORMATION
  Report Type: Spontaneous
  Country: US (occurrence: US)
  Receive Date: 20210128
  Receipt Date: 20210310
  Transmission Date: 20210419
  Serious: Yes (Death, Other)
  Sender: FDA-Public Use
  Company Number: US-INCYTE CORPORATION-2021IN000551

PATIENT

DRUGS (64)
  1. JAKAFI [Suspect]
     Active Substance: RUXOLITINIB
     Dosage: 10 MILLIGRAM, BID
     Route: 048
     Dates: start: 20201128
  2. SOLU?MEDROL [Concomitant]
     Active Substance: METHYLPREDNISOLONE SODIUM SUCCINATE
     Dosage: UNK
     Route: 065
     Dates: start: 20201126, end: 20201231
  3. SOLU?MEDROL [Concomitant]
     Active Substance: METHYLPREDNISOLONE SODIUM SUCCINATE
     Dosage: 40 MG
     Route: 065
  4. PROGRAF [Concomitant]
     Active Substance: TACROLIMUS
     Dosage: 0.2 MG IN DEXTROSE 5% 50 ML INFUSION
     Route: 065
  5. GLUCOSE [Concomitant]
     Active Substance: DEXTROSE
     Indication: DIABETES MELLITUS
     Route: 065
  6. FLAGYL [Concomitant]
     Active Substance: METRONIDAZOLE\METRONIDAZOLE HYDROCHLORIDE
     Indication: PRODUCT USED FOR UNKNOWN INDICATION
     Dosage: 500 MILLIGRAM IN 100 ML IVPB
     Route: 065
  7. TPN [AMINO ACIDS NOS;CARBOHYDRATES NOS;MINERALS NOS;VITAMINS NOS] [Concomitant]
     Active Substance: AMINO ACIDS\CARBOHYDRATES\MINERALS\VITAMINS
     Indication: PRODUCT USED FOR UNKNOWN INDICATION
     Dosage: CENTRAL LINE
     Route: 065
  8. VASOSTRICT [Concomitant]
     Active Substance: VASOPRESSIN
     Indication: PRODUCT USED FOR UNKNOWN INDICATION
     Dosage: 20 UNITS IN DEXTROSE 5 % 100 ML INFUSION
     Route: 065
  9. HUMAN ALBUMIN [Concomitant]
     Active Substance: ALBUMIN HUMAN
     Indication: PRODUCT USED FOR UNKNOWN INDICATION
     Dosage: 25% INFUSION 25 G
     Route: 065
  10. ROCEPHIN [Concomitant]
     Active Substance: CEFTRIAXONE SODIUM
     Indication: PRODUCT USED FOR UNKNOWN INDICATION
     Dosage: 2000 MILLIGRAM
     Route: 065
  11. ZOVIRAX [Concomitant]
     Active Substance: ACYCLOVIR
     Dosage: 125 MG IN 0.9% NACL IV 100 ML IVPB
     Route: 042
  12. PERIDEX [CHLORHEXIDINE GLUCONATE] [Concomitant]
     Indication: PRODUCT USED FOR UNKNOWN INDICATION
     Dosage: 0.12 PERCENT
     Route: 065
  13. NOVOLOG [Concomitant]
     Active Substance: INSULIN ASPART
     Indication: PRODUCT USED FOR UNKNOWN INDICATION
     Dosage: 0?18 UNITS
     Route: 065
  14. SYNTHROID [Concomitant]
     Active Substance: LEVOTHYROXINE SODIUM
     Dosage: 44 MCG INJECTION
     Route: 065
  15. DEFINITY [Concomitant]
     Active Substance: PERFLUTREN
     Indication: PRODUCT USED FOR UNKNOWN INDICATION
     Dosage: 0.5 MILLILITER
     Route: 065
  16. CLARITIN [Concomitant]
     Active Substance: LORATADINE
     Indication: PRODUCT USED FOR UNKNOWN INDICATION
     Dosage: 10 MILLIGRAM
     Route: 065
  17. MELATONIN [Concomitant]
     Active Substance: MELATONIN
     Indication: PRODUCT USED FOR UNKNOWN INDICATION
     Dosage: 3 MILLIGRAM
     Route: 065
  18. JAKAFI [Suspect]
     Active Substance: RUXOLITINIB
     Dosage: 5 MILLIGRAM, BID
     Route: 048
     Dates: start: 20201205
  19. SOLU?MEDROL [Concomitant]
     Active Substance: METHYLPREDNISOLONE SODIUM SUCCINATE
     Dosage: 50 MG
     Route: 065
  20. VANCOMYCIN [VANCOMYCIN HYDROCHLORIDE] [Concomitant]
     Active Substance: VANCOMYCIN HYDROCHLORIDE
     Dosage: 500 MG
     Route: 065
  21. ZOVIRAX [Concomitant]
     Active Substance: ACYCLOVIR
     Indication: PRODUCT USED FOR UNKNOWN INDICATION
     Dosage: 400 MILLIGRAM
     Route: 065
  22. ROXICODONE [Concomitant]
     Active Substance: OXYCODONE HYDROCHLORIDE
     Indication: PRODUCT USED FOR UNKNOWN INDICATION
     Dosage: 5 MILLIGRAM
     Route: 065
  23. JAKAFI [Suspect]
     Active Substance: RUXOLITINIB
     Indication: GRAFT VERSUS HOST DISEASE IN GASTROINTESTINAL TRACT
     Dosage: 5 MILLIGRAM
     Route: 065
  24. JAKAFI [Suspect]
     Active Substance: RUXOLITINIB
     Dosage: 10 MILLIGRAM, BID
     Route: 048
     Dates: start: 20201208
  25. NOXAFIL [Suspect]
     Active Substance: POSACONAZOLE
     Dosage: 300 MG IN 0.9% NACL IV 266.7 ML IVPB
     Route: 042
  26. ENTOCORT EC [Concomitant]
     Active Substance: BUDESONIDE
     Indication: PRODUCT USED FOR UNKNOWN INDICATION
     Dosage: 3 MILLIGRAM, TID
     Route: 065
     Dates: start: 20201121
  27. NACL [Concomitant]
     Active Substance: SODIUM CHLORIDE
     Dosage: 3 MILLILITER
     Route: 065
  28. NACL [Concomitant]
     Active Substance: SODIUM CHLORIDE
     Dosage: 10 MILLILITER (0.9%)
     Route: 065
  29. ARTIFICIAL TEAR [HYPROMELLOSE] [Concomitant]
     Indication: PRODUCT USED FOR UNKNOWN INDICATION
     Route: 065
  30. SYNTHROID [Concomitant]
     Active Substance: LEVOTHYROXINE SODIUM
     Indication: PRODUCT USED FOR UNKNOWN INDICATION
     Dosage: 88 MICROGRAM TABLET
     Route: 065
  31. MAGNESIUM SULFATE. [Concomitant]
     Active Substance: MAGNESIUM SULFATE
     Indication: PRODUCT USED FOR UNKNOWN INDICATION
     Dosage: 2 MILLIGRAM IN 50 ML BOLUS
     Route: 065
  32. LEVOPHED [Concomitant]
     Active Substance: NOREPINEPHRINE BITARTRATE
     Indication: PRODUCT USED FOR UNKNOWN INDICATION
     Dosage: 8 MG/250 ML D5 INFUSION
     Route: 065
  33. ZOFRAN [Concomitant]
     Active Substance: ONDANSETRON HYDROCHLORIDE
     Indication: PRODUCT USED FOR UNKNOWN INDICATION
     Dosage: 4 MILLIGRAM
     Route: 065
  34. CAPHOSOL [Concomitant]
     Active Substance: CALCIUM CHLORIDE\SODIUM CHLORIDE\SODIUM PHOSPHATE, DIBASIC, ANHYDROUS\SODIUM PHOSPHATE, MONOBASIC, ANHYDROUS
     Indication: PRODUCT USED FOR UNKNOWN INDICATION
     Route: 065
  35. NEURONTIN [Concomitant]
     Active Substance: GABAPENTIN
     Indication: PRODUCT USED FOR UNKNOWN INDICATION
     Dosage: 300 MILLIGRAM
     Route: 065
  36. SOLU?MEDROL [Concomitant]
     Active Substance: METHYLPREDNISOLONE SODIUM SUCCINATE
     Indication: PRODUCT USED FOR UNKNOWN INDICATION
     Dosage: 2 MILLIGRAM/KILOGRAM
     Route: 065
     Dates: start: 20201118
  37. NACL [Concomitant]
     Active Substance: SODIUM CHLORIDE
     Dosage: 10 MILLILITER
     Route: 065
  38. DELTASONE [PREDNISOLONE] [Concomitant]
     Active Substance: PREDNISOLONE
     Indication: PRODUCT USED FOR UNKNOWN INDICATION
     Dosage: 5 MILLIGRAM
     Route: 065
  39. BACTRIM [Concomitant]
     Active Substance: SULFAMETHOXAZOLE\TRIMETHOPRIM
     Indication: PRODUCT USED FOR UNKNOWN INDICATION
     Dosage: 200?40 MG/5 ML SUSPENSION 20 ML
     Route: 065
  40. BLISTEX MEDICATED MINT LIP BALM [Concomitant]
     Active Substance: DIMETHICONE\OXYBENZONE\PADIMATE O
     Indication: PRODUCT USED FOR UNKNOWN INDICATION
     Route: 065
  41. DEXTROSE. [Concomitant]
     Active Substance: DEXTROSE
     Indication: PRODUCT USED FOR UNKNOWN INDICATION
     Dosage: 12.5?25G
     Route: 065
  42. PROGRAF [Concomitant]
     Active Substance: TACROLIMUS
     Indication: GRAFT VERSUS HOST DISEASE IN GASTROINTESTINAL TRACT
     Dosage: 0.15 MILLIGRAM
     Route: 042
     Dates: start: 20201119
  43. VANCOMYCIN [VANCOMYCIN HYDROCHLORIDE] [Concomitant]
     Active Substance: VANCOMYCIN HYDROCHLORIDE
     Indication: PROPHYLAXIS
     Dosage: 125 MILLIGRAM, Q12H
     Route: 065
  44. NACL [Concomitant]
     Active Substance: SODIUM CHLORIDE
     Dosage: 0.9% INJECTION
     Route: 065
  45. BECLOMETHASONE [BECLOMETASONE] [Concomitant]
     Active Substance: BECLOMETHASONE
     Indication: PRODUCT USED FOR UNKNOWN INDICATION
     Dosage: 2 MILLIGRAM
     Route: 065
  46. MAXIPIME [Concomitant]
     Active Substance: CEFEPIME HYDROCHLORIDE
     Indication: PRODUCT USED FOR UNKNOWN INDICATION
     Dosage: 2000 MILLIGRAM
     Route: 065
  47. HEPARIN [Concomitant]
     Active Substance: HEPARIN SODIUM
     Indication: PRODUCT USED FOR UNKNOWN INDICATION
     Dosage: 500 UNITS
     Route: 065
  48. PROTONIX [Concomitant]
     Active Substance: PANTOPRAZOLE SODIUM
     Indication: PRODUCT USED FOR UNKNOWN INDICATION
     Dosage: 40 MILLIGRAM
     Route: 065
  49. POTASSIUM CHLORIDE. [Concomitant]
     Active Substance: POTASSIUM CHLORIDE
     Indication: PRODUCT USED FOR UNKNOWN INDICATION
     Dosage: 40 MILLIEQUIVALENT IN 270 ML BOLUS
     Route: 065
  50. TUCKS [GLYCEROL;HAMAMELIS VIRGINIANA] [Concomitant]
     Indication: PRODUCT USED FOR UNKNOWN INDICATION
     Route: 065
  51. CATHFLO ACTIVASE [Concomitant]
     Active Substance: ALTEPLASE
     Indication: PRODUCT USED FOR UNKNOWN INDICATION
     Dosage: 2 MILLIGRAM
     Route: 065
  52. GLUCAGEN [GLUCAGON] [Concomitant]
     Indication: PRODUCT USED FOR UNKNOWN INDICATION
     Dosage: 1 MILLIGRAM
     Route: 065
  53. KEPPRA [Concomitant]
     Active Substance: LEVETIRACETAM
     Indication: PRODUCT USED FOR UNKNOWN INDICATION
     Dosage: 1000 MILLIGRAM IN 100 ML IVPB
     Route: 065
  54. POTASSIUM PHOSPHATE [POTASSIUM PHOSPHATE DIBASIC] [Concomitant]
     Indication: PRODUCT USED FOR UNKNOWN INDICATION
     Dosage: 30 MILLIMOLE IN DEXTROSE 5 PERCENT 260 ML BOLUS
     Route: 065
  55. ZOLOFT [Concomitant]
     Active Substance: SERTRALINE HYDROCHLORIDE
     Indication: PRODUCT USED FOR UNKNOWN INDICATION
     Dosage: 25 MILLIGRAM
     Route: 065
  56. FLONASE [Concomitant]
     Active Substance: FLUTICASONE PROPIONATE
     Indication: PRODUCT USED FOR UNKNOWN INDICATION
     Dosage: 2 SPRAYS
     Route: 065
  57. NOXAFIL [Suspect]
     Active Substance: POSACONAZOLE
     Indication: PRODUCT USED FOR UNKNOWN INDICATION
     Dosage: UNK
     Route: 042
     Dates: end: 20201216
  58. PROGRAF [Concomitant]
     Active Substance: TACROLIMUS
     Dosage: UNK
     Route: 048
     Dates: start: 20201215
  59. NACL [Concomitant]
     Active Substance: SODIUM CHLORIDE
     Indication: PRODUCT USED FOR UNKNOWN INDICATION
     Dosage: 0.45%
     Route: 065
  60. NACL [Concomitant]
     Active Substance: SODIUM CHLORIDE
     Dosage: 1?10 MILLILITER
     Route: 065
  61. NACL [Concomitant]
     Active Substance: SODIUM CHLORIDE
     Dosage: 0.45% INFUSION
     Route: 065
  62. ROCALTROL [Concomitant]
     Active Substance: CALCITRIOL
     Indication: PRODUCT USED FOR UNKNOWN INDICATION
     Dosage: 0.25 MICROGRAM
     Route: 065
  63. COMPAZINE [PROCHLORPERAZINE EDISYLATE] [Concomitant]
     Active Substance: PROCHLORPERAZINE EDISYLATE
     Indication: PRODUCT USED FOR UNKNOWN INDICATION
     Dosage: 5 MILLIGRAM
     Route: 065
  64. LOVENOX [Concomitant]
     Active Substance: ENOXAPARIN SODIUM
     Indication: PRODUCT USED FOR UNKNOWN INDICATION
     Dosage: 40 MILLIGRAM
     Route: 065

REACTIONS (21)
  - Respiratory failure [Fatal]
  - Enterobacter bacteraemia [Not Recovered/Not Resolved]
  - Oedema peripheral [Not Recovered/Not Resolved]
  - Pupillary reflex impaired [Not Recovered/Not Resolved]
  - Interstitial lung disease [Fatal]
  - Bacterial infection [Not Recovered/Not Resolved]
  - Hyperbilirubinaemia [Recovered/Resolved]
  - Dysphonia [Not Recovered/Not Resolved]
  - Myasthenia gravis [Not Recovered/Not Resolved]
  - Pneumonia viral [Not Recovered/Not Resolved]
  - Muscle twitching [Not Recovered/Not Resolved]
  - Graft versus host disease in gastrointestinal tract [Fatal]
  - Cardiac arrest [Not Recovered/Not Resolved]
  - Paraneoplastic syndrome [Not Recovered/Not Resolved]
  - Adenovirus infection [Not Recovered/Not Resolved]
  - Blood urea increased [Not Recovered/Not Resolved]
  - Decubitus ulcer [Not Recovered/Not Resolved]
  - Urinary tract infection [Not Recovered/Not Resolved]
  - Unresponsive to stimuli [Not Recovered/Not Resolved]
  - Brain injury [Not Recovered/Not Resolved]
  - Transaminases increased [Not Recovered/Not Resolved]

NARRATIVE: CASE EVENT DATE: 20201117
